FAERS Safety Report 4896767-9 (Version None)
Quarter: 2006Q1

REPORT INFORMATION
  Report Type: 
  Country: None (occurrence: None)
  Receive Date: 20060126
  Receipt Date: 20060113
  Transmission Date: 20060701
  Serious: Yes (Hospitalization, Congenital Anomaly)
  Sender: FDA-Public Use
  Company Number: 2001084071BE

PATIENT
  Age: 72 Year
  Sex: Female

DRUGS (7)
  1. LINEZOLID SOLUTION, STERILE (LINEZOLID) [Suspect]
     Indication: BACTERIAL INFECTION
     Dosage: 1200 MG (600 MG, 2 IN 1 D),
     Dates: start: 20010126, end: 20011206
  2. MESULID (NIMESULIDE) [Concomitant]
  3. CIPROFLOXACIN [Concomitant]
  4. RIFADIN [Concomitant]
  5. INSULIN [Concomitant]
  6. CITALOPRAM (CITALOPRAM) [Concomitant]
  7. LORMETAZEPAM (LORMETAZEPAM) [Concomitant]

REACTIONS (2)
  - OCULAR HYPERTENSION [None]
  - OPTIC NEURITIS [None]
